FAERS Safety Report 24869917 (Version 1)
Quarter: 2025Q1

REPORT INFORMATION
  Report Type: Spontaneous
  Country: CA (occurrence: None)
  Receive Date: 20250120
  Receipt Date: 20250120
  Transmission Date: 20250408
  Serious: Yes (Death, Hospitalization)
  Sender: FDA-CTU
  Company Number: None

PATIENT
  Sex: Female

DRUGS (7)
  1. DIMETHICONE [Suspect]
     Active Substance: DIMETHICONE
     Indication: Urosepsis
     Route: 061
     Dates: start: 20240902, end: 20241108
  2. DOMPERIDONE [Concomitant]
     Active Substance: DOMPERIDONE
  3. LEVETIRACETAM [Concomitant]
     Active Substance: LEVETIRACETAM
  4. CARBIDOPA\LEVODOPA [Concomitant]
     Active Substance: CARBIDOPA\LEVODOPA
  5. MIRTAZAPINE [Concomitant]
     Active Substance: MIRTAZAPINE
  6. ESOMEPRAZOLE [Concomitant]
     Active Substance: ESOMEPRAZOLE
  7. VITAMIN D [Concomitant]
     Active Substance: VITAMIN D NOS

REACTIONS (3)
  - Mouth haemorrhage [None]
  - Drug hypersensitivity [None]
  - Death [None]
